FAERS Safety Report 8764945 (Version 6)
Quarter: 2012Q4

REPORT INFORMATION
  Report Type: Report from Study
  Country: BE (occurrence: DE)
  Receive Date: 20120903
  Receipt Date: 20121103
  Transmission Date: 20130627
  Serious: Yes (Life-Threatening, Hospitalization, Disabling, Other)
  Sender: FDA-Public Use
  Company Number: DE-BRISTOL-MYERS SQUIBB COMPANY-16798506

PATIENT
  Age: 63 Year
  Sex: Male

DRUGS (3)
  1. IPILIMUMAB [Suspect]
     Indication: MALIGNANT MELANOMA
     Dosage: no of course-3
     Route: 042
     Dates: start: 20120608, end: 20120720
  2. UNSPECIFIED INGREDIENT [Suspect]
  3. TIMOLOL [Concomitant]
     Dosage: eye drops
     Route: 047

REACTIONS (7)
  - Adrenocortical insufficiency acute [Not Recovered/Not Resolved]
  - Thyrotoxic crisis [Not Recovered/Not Resolved]
  - Hypophysitis [Recovered/Resolved]
  - Metastases to central nervous system [Unknown]
  - Autoimmune thyroiditis [None]
  - Blood sodium increased [None]
  - Blood potassium decreased [None]
